FAERS Safety Report 4869206-1 (Version None)
Quarter: 2005Q4

REPORT INFORMATION
  Report Type: 
  Country: None (occurrence: None)
  Receive Date: 20051228
  Receipt Date: 20051228
  Transmission Date: 20060501
  Serious: No
  Sender: FDA-Public Use
  Company Number: None

PATIENT
  Age: 50 Year
  Sex: Female
  Weight: 78.9259 kg

DRUGS (2)
  1. LEVAQUIN [Suspect]
     Indication: EAR INFECTION
     Dosage: 500 MG   1 A DAY   PO
     Route: 048
     Dates: start: 20051102, end: 20051109
  2. LEVAQUIN [Suspect]
     Indication: SINUSITIS
     Dosage: 500 MG   1 A DAY   PO
     Route: 048
     Dates: start: 20051102, end: 20051109

REACTIONS (11)
  - BURNING SENSATION [None]
  - DECREASED ACTIVITY [None]
  - DIFFICULTY IN WALKING [None]
  - FATIGUE [None]
  - FEELING ABNORMAL [None]
  - GRIP STRENGTH DECREASED [None]
  - HYPOAESTHESIA [None]
  - MUSCLE SPASMS [None]
  - OEDEMA PERIPHERAL [None]
  - PAIN IN EXTREMITY [None]
  - RED BLOOD CELL SEDIMENTATION RATE INCREASED [None]
